FAERS Safety Report 8778656 (Version 2)
Quarter: 2014Q3

REPORT INFORMATION
  Report Type: Report from Study
  Country: US (occurrence: US)
  Receive Date: 20120912
  Receipt Date: 20140825
  Transmission Date: 20150326
  Serious: Yes (Other)
  Sender: FDA-Public Use
  Company Number: US-ROCHE-1092159

PATIENT
  Sex: Male
  Weight: 57 kg

DRUGS (6)
  1. TARCEVA [Suspect]
     Active Substance: ERLOTINIB HYDROCHLORIDE
     Indication: BRAIN NEOPLASM MALIGNANT
  2. TARCEVA [Suspect]
     Active Substance: ERLOTINIB HYDROCHLORIDE
     Indication: NON-SMALL CELL LUNG CANCER
  3. AVASTIN [Suspect]
     Active Substance: BEVACIZUMAB
     Indication: METASTASES TO NERVOUS SYSTEM
  4. AVASTIN [Suspect]
     Active Substance: BEVACIZUMAB
     Indication: NON-SMALL CELL LUNG CANCER
  5. TARCEVA [Suspect]
     Active Substance: ERLOTINIB HYDROCHLORIDE
     Indication: LUNG NEOPLASM MALIGNANT
     Route: 065
  6. AVASTIN [Suspect]
     Active Substance: BEVACIZUMAB
     Indication: LUNG NEOPLASM MALIGNANT
     Route: 042

REACTIONS (2)
  - Metastases to central nervous system [Unknown]
  - Disease progression [Unknown]
